FAERS Safety Report 7602645-4 (Version None)
Quarter: 2011Q3

REPORT INFORMATION
  Report Type: 
  Country: None (occurrence: None)
  Receive Date: 20110712
  Receipt Date: 20110630
  Transmission Date: 20111222
  Serious: Yes (Hospitalization)
  Sender: FDA-Public Use
  Company Number: JP-ELI_LILLY_AND_COMPANY-JP201106006220

PATIENT

DRUGS (5)
  1. MEILAX [Concomitant]
     Indication: ANOREXIA NERVOSA
     Dosage: UNK
     Route: 048
     Dates: start: 20110419, end: 20110629
  2. ALPRAZOLAM [Concomitant]
     Indication: ANOREXIA NERVOSA
     Dosage: 0.4 MG, PRN
     Route: 048
     Dates: start: 20110330
  3. PAXIL [Concomitant]
     Indication: ANOREXIA NERVOSA
     Dosage: UNK
     Route: 048
     Dates: start: 20100810
  4. ZYPREXA [Suspect]
     Indication: ANOREXIA NERVOSA
     Dosage: 2.5 MG, QD
     Route: 048
     Dates: start: 20110330, end: 20110620
  5. PAXIL [Concomitant]
     Dosage: UNK
     Route: 048

REACTIONS (3)
  - HYPOGLYCAEMIA [None]
  - OFF LABEL USE [None]
  - WRONG TECHNIQUE IN DRUG USAGE PROCESS [None]
